FAERS Safety Report 11228837 (Version 1)
Quarter: 2015Q2

REPORT INFORMATION
  Report Type: Other
  Country: DE (occurrence: DE)
  Receive Date: 20150630
  Receipt Date: 20150630
  Transmission Date: 20150821
  Serious: Yes (Other)
  Sender: FDA-Public Use
  Company Number: DE-MYLANLABS-2015M1020440

PATIENT

DRUGS (1)
  1. OMEPRAZOL [Suspect]
     Active Substance: OMEPRAZOLE
     Indication: GASTRITIS
     Dosage: 20 MG/DAY, TWO TIMES, (2MAL 20MG/TAG,1MAL20MG/TAG)
     Route: 048
     Dates: start: 20150126

REACTIONS (3)
  - Circulatory collapse [Unknown]
  - Muscular weakness [Recovered/Resolved]
  - Headache [Unknown]

NARRATIVE: CASE EVENT DATE: 20150129
